FAERS Safety Report 7117828-X (Version None)
Quarter: 2010Q4

REPORT INFORMATION
  Report Type: 
  Country: None (occurrence: None)
  Receive Date: 20101118
  Receipt Date: 20101118
  Transmission Date: 20110411
  Serious: Yes (Disabling)
  Sender: FDA-Public Use
  Company Number: None

PATIENT
  Age: 70 Year
  Sex: Female
  Weight: 69.8539 kg

DRUGS (1)
  1. COLESTIPOL HYDROCHLORIDE [Suspect]
     Indication: BILIARY TRACT DISORDER
     Dosage: 1 GRAM 2X PER DAY ORAL
     Route: 048
     Dates: start: 20101005, end: 20101010

REACTIONS (2)
  - ARTHRITIS [None]
  - PAIN [None]
